FAERS Safety Report 12080435 (Version 1)
Quarter: 2016Q1

REPORT INFORMATION
  Report Type: Spontaneous
  Country: US (occurrence: US)
  Receive Date: 20160216
  Receipt Date: 20160216
  Transmission Date: 20160526
  Serious: Yes (Hospitalization, Disabling)
  Sender: FDA-Public Use
  Company Number: US-ASTRAZENECA-2016SE13814

PATIENT
  Age: 60 Year
  Sex: Male

DRUGS (2)
  1. DAPAGLIFLOZIN [Suspect]
     Active Substance: DAPAGLIFLOZIN
     Indication: GLUCOSE TOLERANCE IMPAIRED
     Route: 048
  2. STATIN THERAPY [Concomitant]
     Route: 065

REACTIONS (2)
  - Brain stem stroke [Unknown]
  - Cerebellar ischaemia [Unknown]
